FAERS Safety Report 4340972-7 (Version None)
Quarter: 2004Q2

REPORT INFORMATION
  Report Type: 
  Country: None (occurrence: None)
  Receive Date: 20040413
  Receipt Date: 20040406
  Transmission Date: 20050107
  Serious: Yes (Hospitalization)
  Sender: FDA-Public Use
  Company Number: US-JNJFOC-20040401620

PATIENT
  Age: 86 Year
  Sex: Male

DRUGS (1)
  1. RISPERDAL [Suspect]
     Indication: DEMENTIA
     Dosage: 1 MG,  IN 1 DAY, ORAL
     Route: 048
     Dates: end: 20040329

REACTIONS (1)
  - TEMPORAL ARTERITIS [None]
